FAERS Safety Report 12714261 (Version 1)
Quarter: 2016Q3

REPORT INFORMATION
  Report Type: Spontaneous
  Country: US (occurrence: US)
  Receive Date: 20160905
  Receipt Date: 20160905
  Transmission Date: 20161109
  Serious: No
  Sender: FDA-Public Use
  Company Number: US-JAZZ-2016-US-008769

PATIENT
  Sex: Female

DRUGS (18)
  1. LEVOTHYROXINE SODIUM. [Concomitant]
     Active Substance: LEVOTHYROXINE SODIUM
  2. XYREM [Suspect]
     Active Substance: SODIUM OXYBATE
     Dosage: 2.25 G, BID
     Route: 048
     Dates: start: 201602
  3. XYREM [Suspect]
     Active Substance: SODIUM OXYBATE
     Dosage: 2.5 G, BID
     Route: 048
     Dates: start: 201507, end: 2016
  4. VENLAFAXINE HCL [Concomitant]
     Active Substance: VENLAFAXINE HYDROCHLORIDE
  5. IBUPROFEN. [Concomitant]
     Active Substance: IBUPROFEN
  6. MONTELUKAST SODIUM. [Concomitant]
     Active Substance: MONTELUKAST SODIUM
  7. PROAIR HFA [Concomitant]
     Active Substance: ALBUTEROL SULFATE
  8. MAGNESIUM OXIDE. [Concomitant]
     Active Substance: MAGNESIUM OXIDE
  9. MULTIVITAMINS WITH IRON [Concomitant]
     Active Substance: IRON\VITAMINS
  10. VITAMIN E [Concomitant]
     Active Substance: .ALPHA.-TOCOPHEROL
  11. XYREM [Suspect]
     Active Substance: SODIUM OXYBATE
     Indication: NARCOLEPSY
     Dosage: 2.25 G, BID
     Route: 048
     Dates: start: 201507, end: 201507
  12. PRAVASTATIN SODIUM. [Concomitant]
     Active Substance: PRAVASTATIN SODIUM
  13. MODAFINIL. [Concomitant]
     Active Substance: MODAFINIL
  14. SIMVASTATIN. [Concomitant]
     Active Substance: SIMVASTATIN
  15. MELOXICAM. [Concomitant]
     Active Substance: MELOXICAM
  16. NAPROXEN. [Concomitant]
     Active Substance: NAPROXEN
  17. ORPHENADRINE CITRATE. [Concomitant]
     Active Substance: ORPHENADRINE CITRATE
  18. CALCIUM [Concomitant]
     Active Substance: CALCIUM

REACTIONS (2)
  - Hypersensitivity [Not Recovered/Not Resolved]
  - Nasopharyngitis [Not Recovered/Not Resolved]
